FAERS Safety Report 26219198 (Version 1)
Quarter: 2025Q4

REPORT INFORMATION
  Report Type: Spontaneous
  Country: GB (occurrence: None)
  Receive Date: 20251231
  Receipt Date: 20251231
  Transmission Date: 20260117
  Serious: Yes (Hospitalization, Other)
  Sender: UCB
  Company Number: GB-UCBSA-2025082800

PATIENT
  Age: 50 Year

DRUGS (1)
  1. BIMZELX [Suspect]
     Active Substance: BIMEKIZUMAB-BKZX
     Indication: Psoriasis
     Dosage: UNK

REACTIONS (9)
  - Renal impairment [Unknown]
  - Hospitalisation [Unknown]
  - Psoriasis [Unknown]
  - General physical health deterioration [Unknown]
  - Dizziness [Unknown]
  - Fall [Unknown]
  - Depressed mood [Unknown]
  - Condition aggravated [Unknown]
  - Depression [Unknown]
